FAERS Safety Report 17862246 (Version 1)
Quarter: 2020Q2

REPORT INFORMATION
  Report Type: Spontaneous
  Country: US (occurrence: US)
  Receive Date: 20200604
  Receipt Date: 20200604
  Transmission Date: 20200714
  Serious: Yes (Other)
  Sender: FDA-Public Use
  Company Number: NVSC2020US155714

PATIENT

DRUGS (1)
  1. KYMRIAH [Suspect]
     Active Substance: TISAGENLECLEUCEL
     Indication: ACUTE LYMPHOCYTIC LEUKAEMIA RECURRENT
     Dosage: 4.6 DF, QD (INTO BLOODSTREAM VIA VEIN)
     Route: 042
     Dates: start: 201909, end: 201909

REACTIONS (1)
  - Acute lymphocytic leukaemia recurrent [Unknown]
